FAERS Safety Report 5497337-4 (Version None)
Quarter: 2007Q4

REPORT INFORMATION
  Report Type: 
  Country: None (occurrence: None)
  Receive Date: 20071025
  Receipt Date: 20061012
  Transmission Date: 20080405
  Serious: Yes (Other)
  Sender: FDA-Public Use
  Company Number: A0622399A

PATIENT
  Age: 67 Year
  Sex: Female

DRUGS (3)
  1. ADVAIR DISKUS 100/50 [Suspect]
     Indication: ASTHMA
     Route: 055
  2. SPIRIVA [Suspect]
  3. ALLEGRA [Concomitant]

REACTIONS (5)
  - ASTHMA [None]
  - CANDIDIASIS [None]
  - DYSPHONIA [None]
  - DYSPNOEA [None]
  - PHARYNGOLARYNGEAL PAIN [None]
